FAERS Safety Report 19349792 (Version 2)
Quarter: 2022Q2

REPORT INFORMATION
  Report Type: Other
  Country: IT (occurrence: IT)
  Receive Date: 20210531
  Receipt Date: 20220520
  Transmission Date: 20220721
  Serious: Yes (Hospitalization)
  Sender: FDA-Public Use
  Company Number: IT-CELLTRION HEALTHCARE HUNGARY KFT-2021IT006556

PATIENT
  Age: 45 Year
  Sex: Female

DRUGS (4)
  1. RITUXIMAB [Suspect]
     Active Substance: RITUXIMAB
     Indication: Pemphigus
     Dosage: CYCLE OF RTX (500 MG X 4 WEEKLY INFUSIONS)?CONCENTRATE FOR SOLUTION FOR INFUSION
     Route: 042
     Dates: start: 201905
  2. RITUXIMAB [Suspect]
     Active Substance: RITUXIMAB
     Dosage: 500 MG?CONCENTRATE FOR SOLUTION FOR INFUSION
     Route: 042
     Dates: start: 20200123
  3. PREDNISONE [Suspect]
     Active Substance: PREDNISONE
     Indication: Pemphigus
     Route: 065
     Dates: start: 20200123
  4. PREDNISONE [Suspect]
     Active Substance: PREDNISONE
     Dosage: GRADUALLY TAPERED TO 5 MG
     Route: 065

REACTIONS (2)
  - COVID-19 pneumonia [Recovered/Resolved]
  - Off label use [Unknown]
